FAERS Safety Report 4511839-6 (Version None)
Quarter: 2004Q4

REPORT INFORMATION
  Report Type: 
  Country: None (occurrence: None)
  Receive Date: 20041123
  Receipt Date: 20041111
  Transmission Date: 20050328
  Serious: Yes (Other)
  Sender: FDA-Public Use
  Company Number: 2004091636

PATIENT
  Age: 78 Year
  Sex: Male
  Weight: 74.8435 kg

DRUGS (5)
  1. BENADRYL [Suspect]
     Indication: INSOMNIA
     Dosage: 2 TABLETS, 3 TIMES WEEKLY, ORAL
     Route: 048
     Dates: start: 20040101, end: 20041110
  2. METOPROLOL TARTRATE [Concomitant]
  3. FINASTERIDE [Concomitant]
  4. DOCUSATE (DOCUSATE) [Concomitant]
  5. OMEPRAZOLE [Concomitant]

REACTIONS (2)
  - DRUG INEFFECTIVE [None]
  - PROSTATIC DISORDER [None]
